FAERS Safety Report 10593118 (Version 1)
Quarter: 2014Q4

REPORT INFORMATION
  Report Type: Spontaneous
  Country: US (occurrence: US)
  Receive Date: 20141119
  Receipt Date: 20141119
  Transmission Date: 20150529
  Serious: Yes (Other)
  Sender: FDA-Public Use
  Company Number: US-MYLANLABS-2014M1010539

PATIENT

DRUGS (2)
  1. EPIPEN [Suspect]
     Active Substance: EPINEPHRINE
     Indication: SYNCOPE
     Dosage: 0.3 MG, PRN
     Route: 030
     Dates: start: 2009
  2. EPIPEN [Suspect]
     Active Substance: EPINEPHRINE
     Indication: OFF LABEL USE

REACTIONS (1)
  - Device failure [Recovered/Resolved]

NARRATIVE: CASE EVENT DATE: 20141010
